FAERS Safety Report 26069619 (Version 1)
Quarter: 2025Q4

REPORT INFORMATION
  Report Type: Spontaneous
  Country: EU (occurrence: EU)
  Receive Date: 20251120
  Receipt Date: 20251120
  Transmission Date: 20260117
  Serious: Yes (Hospitalization, Disabling, Other)
  Sender: RANBAXY
  Company Number: EU-SUN PHARMACEUTICAL INDUSTRIES INC-2014R1-79621

PATIENT
  Age: 60 Year
  Sex: Male
  Weight: 115 kg

DRUGS (6)
  1. PREDNISONE [Suspect]
     Active Substance: PREDNISONE
     Indication: Prostatic specific antigen increased
     Dosage: 12.5 MG, DAILY
     Route: 065
     Dates: start: 201104
  2. DOCETAXEL [Suspect]
     Active Substance: DOCETAXEL
     Indication: Metastases to bone
     Dosage: UNK
     Route: 065
     Dates: start: 201110
  3. BICALUTAMIDE [Suspect]
     Active Substance: BICALUTAMIDE
     Indication: Prostate cancer metastatic
     Route: 065
  4. GONADORELIN [Suspect]
     Active Substance: GONADORELIN
     Indication: Prostate cancer
     Route: 065
  5. GONADORELIN [Suspect]
     Active Substance: GONADORELIN
     Route: 065
  6. CABAZITAXEL [Suspect]
     Active Substance: CABAZITAXEL
     Indication: Product used for unknown indication
     Dosage: UNK
     Route: 065
     Dates: start: 201204

REACTIONS (13)
  - Weight increased [Recovered/Resolved]
  - Intracranial pressure increased [Recovered/Resolved]
  - Blindness [Recovered/Resolved]
  - Brain herniation [Recovered/Resolved]
  - Prostatic specific antigen increased [Unknown]
  - Papilloedema [Unknown]
  - Exophthalmos [Unknown]
  - Disease progression [Recovering/Resolving]
  - Tinnitus [Recovered/Resolved]
  - Eye pain [Recovered/Resolved]
  - Photophobia [Recovered/Resolved]
  - Fluid retention [Unknown]
  - Metastases to bone [Unknown]

NARRATIVE: CASE EVENT DATE: 20120101
